FAERS Safety Report 16818031 (Version 1)
Quarter: 2019Q3

REPORT INFORMATION
  Report Type: Report from Study
  Country: CA (occurrence: CA)
  Receive Date: 20190917
  Receipt Date: 20190917
  Transmission Date: 20191005
  Serious: Yes (Other)
  Sender: FDA-Public Use
  Company Number: CA-PFIZER INC-2019397299

PATIENT
  Age: 20 Year
  Sex: Female

DRUGS (9)
  1. ACICLOVIR [Concomitant]
     Active Substance: ACYCLOVIR
     Indication: PREMEDICATION
     Dosage: 200 MG, 2X/DAY
     Route: 048
  2. ALEMTUZUMAB [Suspect]
     Active Substance: ALEMTUZUMAB
     Dosage: 12 MG, 1X/DAY
     Route: 041
  3. MEFENAMIC ACID. [Concomitant]
     Active Substance: MEFENAMIC ACID
     Indication: MUSCULOSKELETAL PAIN
     Dosage: 400 MG, UNK
     Route: 048
  4. PARACETAMOL [Concomitant]
     Active Substance: ACETAMINOPHEN
     Indication: PREMEDICATION
     Dosage: UNK
     Route: 048
  5. BENADRYL [Concomitant]
     Active Substance: DIPHENHYDRAMINE HYDROCHLORIDE
     Indication: CHEST PAIN
     Dosage: UNK
     Route: 048
  6. METHYLPREDNISOLONE SODIUM SUCCINATE. [Suspect]
     Active Substance: METHYLPREDNISOLONE SODIUM SUCCINATE
     Indication: PREMEDICATION
     Dosage: 1 G, UNK
     Route: 042
  7. RANITIDINE. [Concomitant]
     Active Substance: RANITIDINE
     Indication: PREMEDICATION
     Dosage: 150 MG, UNK
     Route: 048
  8. REACTINE [CETIRIZINE HYDROCHLORIDE] [Concomitant]
     Active Substance: CETIRIZINE HYDROCHLORIDE
     Indication: PREMEDICATION
     Dosage: 10 MG, UNK
     Route: 048
  9. TYLENOL [Concomitant]
     Active Substance: ACETAMINOPHEN
     Indication: ARTHRALGIA
     Dosage: UNK
     Route: 048

REACTIONS (33)
  - Chest discomfort [Not Recovered/Not Resolved]
  - Hyperthyroidism [Not Recovered/Not Resolved]
  - Nausea [Not Recovered/Not Resolved]
  - Platelet count decreased [Not Recovered/Not Resolved]
  - Band sensation [Not Recovered/Not Resolved]
  - Chest pain [Not Recovered/Not Resolved]
  - Fatigue [Not Recovered/Not Resolved]
  - Neutrophil count decreased [Not Recovered/Not Resolved]
  - Pain [Not Recovered/Not Resolved]
  - Protein urine present [Not Recovered/Not Resolved]
  - Urine ketone body present [Not Recovered/Not Resolved]
  - Crystal urine present [Not Recovered/Not Resolved]
  - Headache [Not Recovered/Not Resolved]
  - Lymphocyte count decreased [Not Recovered/Not Resolved]
  - Thyroxine free increased [Not Recovered/Not Resolved]
  - Blood urine present [Not Recovered/Not Resolved]
  - Eosinophil count increased [Not Recovered/Not Resolved]
  - Hypotension [Not Recovered/Not Resolved]
  - Red blood cells urine positive [Not Recovered/Not Resolved]
  - Tachycardia [Not Recovered/Not Resolved]
  - Tri-iodothyronine free increased [Not Recovered/Not Resolved]
  - Urobilinogen urine increased [Not Recovered/Not Resolved]
  - White blood cell count decreased [Not Recovered/Not Resolved]
  - Bacterial test positive [Not Recovered/Not Resolved]
  - Blood thyroid stimulating hormone decreased [Not Recovered/Not Resolved]
  - Bradycardia [Not Recovered/Not Resolved]
  - Cough [Not Recovered/Not Resolved]
  - Feeling hot [Not Recovered/Not Resolved]
  - Mean cell haemoglobin concentration decreased [Not Recovered/Not Resolved]
  - Flushing [Not Recovered/Not Resolved]
  - Emotional disorder [Not Recovered/Not Resolved]
  - Urinary sediment present [Not Recovered/Not Resolved]
  - White blood cells urine positive [Not Recovered/Not Resolved]
